FAERS Safety Report 8265052-X (Version None)
Quarter: 2012Q2

REPORT INFORMATION
  Report Type: 
  Country: None (occurrence: None)
  Receive Date: 20120406
  Receipt Date: 20120329
  Transmission Date: 20120825
  Serious: Yes (Hospitalization)
  Sender: FDA-Public Use
  Company Number: JP-BRACCO-005646

PATIENT
  Age: 84 Year
  Sex: Female
  Weight: 51 kg

DRUGS (2)
  1. PROHANCE [Suspect]
     Indication: NUCLEAR MAGNETIC RESONANCE IMAGING
     Route: 042
     Dates: start: 20120214, end: 20120214
  2. PROHANCE [Suspect]
     Indication: OVARIAN NEOPLASM
     Route: 042
     Dates: start: 20120214, end: 20120214

REACTIONS (3)
  - DIZZINESS [None]
  - SHOCK [None]
  - NAUSEA [None]
